FAERS Safety Report 8541531-2 (Version None)
Quarter: 2012Q3

REPORT INFORMATION
  Report Type: 
  Country: None (occurrence: None)
  Receive Date: 20120726
  Receipt Date: 20120529
  Transmission Date: 20120928
  Serious: No
  Sender: FDA-Public Use
  Company Number: US-MUTUAL PHARMACEUTICAL COMPANY, INC.-CLCY20110139

PATIENT
  Sex: Male
  Weight: 86.26 kg

DRUGS (1)
  1. COLCRYS [Suspect]
     Indication: GOUT
     Route: 048
     Dates: start: 20110927, end: 20110927

REACTIONS (15)
  - TONGUE DISCOLOURATION [None]
  - ABDOMINAL PAIN UPPER [None]
  - DIARRHOEA [None]
  - HYPOAESTHESIA [None]
  - PARAESTHESIA [None]
  - DYSPHAGIA [None]
  - PAIN IN EXTREMITY [None]
  - THROAT IRRITATION [None]
  - TOOTH DISORDER [None]
  - ASTHENIA [None]
  - DYSPEPSIA [None]
  - INSOMNIA [None]
  - HAEMATOCHEZIA [None]
  - DYSPNOEA [None]
  - ORAL DISCOMFORT [None]
